FAERS Safety Report 5170393-9 (Version None)
Quarter: 2006Q4

REPORT INFORMATION
  Report Type: 
  Country: None (occurrence: None)
  Receive Date: 20061204
  Receipt Date: 20061124
  Transmission Date: 20070319
  Serious: Yes (Death)
  Sender: FDA-Public Use
  Company Number: 2006095770

PATIENT
  Age: 55 Year
  Sex: Female

DRUGS (1)
  1. SUTENT [Suspect]
     Indication: GASTROINTESTINAL STROMAL TUMOUR
     Dosage: 37.5 MG (37.5 MG, 1 IN 1 D), ORAL
     Route: 048
     Dates: start: 20060117, end: 20060725

REACTIONS (1)
  - DEATH [None]
